FAERS Safety Report 17947432 (Version 1)
Quarter: 2020Q2

REPORT INFORMATION
  Report Type: Spontaneous
  Country: US (occurrence: US)
  Receive Date: 20200625
  Receipt Date: 20200625
  Transmission Date: 20200714
  Serious: No
  Sender: FDA-Public Use
  Company Number: US-NOVOPROD-702187

PATIENT
  Sex: Female

DRUGS (1)
  1. OZEMPIC [Suspect]
     Active Substance: SEMAGLUTIDE
     Indication: PRODUCT USED FOR UNKNOWN INDICATION
     Dosage: 0.5 MG
     Route: 058
     Dates: end: 201909

REACTIONS (6)
  - Early satiety [Unknown]
  - Flatulence [Unknown]
  - Nausea [Unknown]
  - Fatigue [Unknown]
  - Constipation [Recovered/Resolved]
  - Weight decreased [Unknown]
